FAERS Safety Report 21836115 (Version 1)
Quarter: 2023Q1

REPORT INFORMATION
  Report Type: Report from Study
  Country: US (occurrence: US)
  Receive Date: 20230109
  Receipt Date: 20230109
  Transmission Date: 20230418
  Serious: No
  Sender: FDA-Public Use
  Company Number: US-ABBVIE-4232646

PATIENT
  Sex: Male

DRUGS (1)
  1. HUMIRA [Suspect]
     Active Substance: ADALIMUMAB
     Indication: Ankylosing spondylitis
     Dosage: CF?ANKYLOSING SPONDYLITIS FLARE UP START DATE WAS 2022
     Route: 058
     Dates: start: 20220708

REACTIONS (1)
  - Ankylosing spondylitis [Recovering/Resolving]
